FAERS Safety Report 7283810-5 (Version None)
Quarter: 2011Q1

REPORT INFORMATION
  Report Type: 
  Country: None (occurrence: None)
  Receive Date: 20110209
  Receipt Date: 20110201
  Transmission Date: 20110831
  Serious: Yes (Other)
  Sender: FDA-Public Use
  Company Number: NO-GENZYME-FABR-1001794

PATIENT
  Sex: Male

DRUGS (6)
  1. FABRAZYME [Suspect]
     Indication: FABRY'S DISEASE
     Dosage: UNK
     Dates: end: 20100801
  2. METOPROLOL [Concomitant]
     Dosage: 50 MG, UNK
  3. WARFARIN [Concomitant]
     Indication: ATRIAL FIBRILLATION
     Dosage: UNK
  4. REPLAGAL [Suspect]
     Indication: FABRY'S DISEASE
     Dosage: 14 MG, 2X/W
     Route: 042
     Dates: start: 20100801
  5. METOPROLOL [Concomitant]
     Indication: CARDIAC DISORDER
     Dosage: 100 MG, UNK
  6. AMITRIPTYLINE HCL [Concomitant]
     Indication: PAIN
     Dosage: 10 MG, UNK

REACTIONS (1)
  - RENAL IMPAIRMENT [None]
